FAERS Safety Report 10205267 (Version 1)
Quarter: 2014Q2

REPORT INFORMATION
  Report Type: Spontaneous
  Country: US (occurrence: US)
  Receive Date: 20140529
  Receipt Date: 20140529
  Transmission Date: 20141212
  Serious: No
  Sender: FDA-Public Use
  Company Number: US-GILEAD-2014-0103821

PATIENT
  Age: 49 Year
  Sex: Female

DRUGS (12)
  1. LETAIRIS [Suspect]
     Indication: PULMONARY HYPERTENSION
     Dosage: 5 MG, QD
     Route: 065
     Dates: start: 20140501
  2. LASIX                              /00032601/ [Concomitant]
     Indication: LOCAL SWELLING
  3. PEPCID AC [Concomitant]
  4. CALCIUM W/VITAMIN D NOS [Concomitant]
  5. FOLIC ACID [Concomitant]
  6. VITAMIN C                          /00008001/ [Concomitant]
  7. ZYRTEC [Concomitant]
     Indication: NASAL CONGESTION
     Dosage: UNK, QD
  8. OMEPRAZOLE [Concomitant]
  9. DIGOXIN [Concomitant]
  10. HYDROXYCHLOROQUINE [Concomitant]
  11. PREDNISONE [Concomitant]
  12. FERROUS SULFATE [Concomitant]

REACTIONS (2)
  - Oedema peripheral [Recovered/Resolved]
  - Nasal congestion [Not Recovered/Not Resolved]
